FAERS Safety Report 4866784-3 (Version None)
Quarter: 2005Q4

REPORT INFORMATION
  Report Type: 
  Country: None (occurrence: None)
  Receive Date: 20051222
  Receipt Date: 20051215
  Transmission Date: 20060501
  Serious: Yes (Death, Hospitalization, Other)
  Sender: FDA-Public Use
  Company Number: A-CH2004-07768

PATIENT
  Age: 76 Year
  Sex: Female

DRUGS (13)
  1. BOSENTAN TABLET 125 MG EU (BOSENTABLET 125 MG EU)(BOSENTAN) TABLET [Suspect]
     Indication: PULMONARY HYPERTENSION
     Dosage: 125 MG BID ORAL, 62.5 MG BID ORAL
     Route: 048
     Dates: start: 20020529, end: 20020625
  2. BOSENTAN TABLET 125 MG EU (BOSENTABLET 125 MG EU)(BOSENTAN) TABLET [Suspect]
     Indication: PULMONARY HYPERTENSION
     Dosage: 125 MG BID ORAL, 62.5 MG BID ORAL
     Route: 048
     Dates: start: 20020626
  3. ANAESTHETICS GENERAL [Suspect]
  4. MORPHINE [Suspect]
  5. OXYGEN (OXYGEN) [Concomitant]
  6. SINTROM [Concomitant]
  7. CACIT (CALCIUM CARBONATE, CITRIC ACID) [Concomitant]
  8. REMEGEL (ALUMINIUM HYDROXIDE-MAGNESIUM CARBONATE GEL) [Concomitant]
  9. KAYEXALATE [Concomitant]
  10. UMULINE (INSULIN HUMAN ZINC SUSPENSION) [Concomitant]
  11. OMEPRAZOLE [Concomitant]
  12. IMOVANE (ZOPICLONE) [Concomitant]
  13. LEVOTHYROXINE SODIUM [Concomitant]

REACTIONS (20)
  - ABDOMINAL PAIN [None]
  - ALANINE AMINOTRANSFERASE INCREASED [None]
  - ASPARTATE AMINOTRANSFERASE INCREASED [None]
  - BLOOD BILIRUBIN INCREASED [None]
  - BLOOD PRESSURE SYSTOLIC DECREASED [None]
  - CARDIAC FAILURE [None]
  - CYTOLYTIC HEPATITIS [None]
  - FALL [None]
  - FEMUR FRACTURE [None]
  - HAEMODYNAMIC INSTABILITY [None]
  - HEPATIC ENCEPHALOPATHY [None]
  - HEPATIC FAILURE [None]
  - OVERDOSE [None]
  - OXYGEN SATURATION DECREASED [None]
  - PULMONARY HYPERTENSION [None]
  - PYREXIA [None]
  - RIGHT VENTRICULAR FAILURE [None]
  - SEPTIC SHOCK [None]
  - SOMNOLENCE [None]
  - STAPHYLOCOCCAL SEPSIS [None]
